FAERS Safety Report 4683378-3 (Version None)
Quarter: 2005Q2

REPORT INFORMATION
  Report Type: 
  Country: None (occurrence: None)
  Receive Date: 20050606
  Receipt Date: 20050606
  Transmission Date: 20051028
  Serious: No
  Sender: FDA-Public Use
  Company Number: None

PATIENT
  Age: 61 Year
  Sex: Female

DRUGS (3)
  1. OXYCONTIN [Suspect]
     Dosage: CAPSULE , EXTENEDED RELEASE
  2. DILAUDID [Suspect]
     Dosage: INJECTABLE
  3. RESTORIL [Suspect]
     Dosage: CAPSULE/COATED /PELLETS

REACTIONS (2)
  - DRUG EFFECT DECREASED [None]
  - MEDICATION ERROR [None]
